FAERS Safety Report 14949116 (Version 1)
Quarter: 2018Q2

REPORT INFORMATION
  Report Type: Spontaneous
  Country: TW (occurrence: TW)
  Receive Date: 20180529
  Receipt Date: 20180529
  Transmission Date: 20180711
  Serious: Yes (Death)
  Sender: FDA-Public Use
  Company Number: TW-PFIZER INC-2018213320

PATIENT
  Age: 75 Year
  Sex: Female

DRUGS (10)
  1. DIOVAN [Concomitant]
     Active Substance: VALSARTAN
     Dosage: 0.5 DF, QD
  2. LICODIN [Concomitant]
     Active Substance: TICLOPIDINE HYDROCHLORIDE
     Dosage: 100 MG, QD
  3. XELJANZ [Suspect]
     Active Substance: TOFACITINIB CITRATE
     Indication: RHEUMATOID ARTHRITIS
     Dosage: 1 DF, BID
     Route: 048
     Dates: start: 20160127
  4. NORVASC [Concomitant]
     Active Substance: AMLODIPINE BESYLATE
     Dosage: 5 MG, QD
  5. VITAMIN D [Concomitant]
     Active Substance: CHOLECALCIFEROL
     Dosage: 1 DF, QD
  6. FOLIC ACID. [Concomitant]
     Active Substance: FOLIC ACID
     Dosage: 1 DF, QD
  7. NATRILIX [Concomitant]
     Active Substance: INDAPAMIDE
     Dosage: 1.5 MG, QD
  8. CALCIUM [Concomitant]
     Active Substance: CALCIUM
     Dosage: 1 DF, QD
  9. SULFASALAZINE. [Concomitant]
     Active Substance: SULFASALAZINE
     Dosage: 1.5 DF, BID
  10. ISOBIDE /07346501/ [Concomitant]
     Dosage: 10 MG, TID

REACTIONS (2)
  - Acute sinusitis [Unknown]
  - Death [Fatal]

NARRATIVE: CASE EVENT DATE: 20180427
